FAERS Safety Report 21659595 (Version 2)
Quarter: 2022Q4

REPORT INFORMATION
  Report Type: Report from Study
  Country: US (occurrence: US)
  Receive Date: 20221129
  Receipt Date: 20221202
  Transmission Date: 20230113
  Serious: Yes (Death)
  Sender: FDA-Public Use
  Company Number: US-ABBVIE-4216958

PATIENT
  Sex: Male

DRUGS (2)
  1. VENCLEXTA [Suspect]
     Active Substance: VENETOCLAX
     Indication: Chronic lymphocytic leukaemia
     Dosage: TAKE 1 TABLET BY MOUTH DAILY FOR 28 DAYS TAKE WITH A MEAL. SWALLOW WHOLE WITH WATER.
     Route: 048
  2. VENCLEXTA [Suspect]
     Active Substance: VENETOCLAX
     Indication: Chronic lymphocytic leukaemia
     Dosage: 150 MG PO QD TAKE ONE 100MG TABLET ALONG WITH ONE 50MG TABLET (150MG TOTAL) BY MOUTH EVERY DAY. T...
     Route: 048

REACTIONS (1)
  - Death [Fatal]
